FAERS Safety Report 8294213-9 (Version None)
Quarter: 2012Q2

REPORT INFORMATION
  Report Type: 
  Country: None (occurrence: None)
  Receive Date: 20120418
  Receipt Date: 20120410
  Transmission Date: 20120825
  Serious: Yes (Hospitalization)
  Sender: FDA-Public Use
  Company Number: US-US-EMD SERONO, INC.-7120688

PATIENT
  Sex: Female

DRUGS (6)
  1. ZOLOFT [Suspect]
     Indication: DEPRESSION
     Dates: start: 20120301
  2. CELEXA [Concomitant]
     Indication: ANXIETY
  3. CYMBALTA [Concomitant]
     Indication: DEPRESSION
     Dates: end: 20120301
  4. REBIF [Suspect]
     Indication: PRODUCT USED FOR UNKNOWN INDICATION
     Route: 058
     Dates: start: 20111129
  5. CELEXA [Concomitant]
     Indication: DEPRESSION
  6. MIRENA [Concomitant]
     Indication: PRODUCT USED FOR UNKNOWN INDICATION

REACTIONS (7)
  - SUICIDAL BEHAVIOUR [None]
  - INJECTION SITE PAIN [None]
  - PAIN IN EXTREMITY [None]
  - OEDEMA PERIPHERAL [None]
  - DEPRESSION [None]
  - NAUSEA [None]
  - INJECTION SITE ERYTHEMA [None]
